FAERS Safety Report 23538639 (Version 1)
Quarter: 2024Q1

REPORT INFORMATION
  Report Type: Spontaneous
  Country: GB (occurrence: GB)
  Receive Date: 20240219
  Receipt Date: 20240219
  Transmission Date: 20240410
  Serious: Yes (Disabling)
  Sender: FDA-Public Use
  Company Number: None

PATIENT
  Age: 6 Year
  Sex: Female

DRUGS (10)
  1. CLARITHROMYCIN [Suspect]
     Active Substance: CLARITHROMYCIN
     Dosage: DAILY DOSE: 432 MG
     Route: 065
  2. CLARITHROMYCIN [Suspect]
     Active Substance: CLARITHROMYCIN
     Dosage: 250MG/5ML, DAILY DOSE: 375 MG
     Route: 065
  3. INOVELON [Concomitant]
     Active Substance: RUFINAMIDE
     Dosage: DAILY DOSE: 720 MG
  4. BECLOMETHASONE DIPROPIONATE [Concomitant]
     Active Substance: BECLOMETHASONE DIPROPIONATE
     Dosage: DAILY DOSE: 4 DOSAGE FORMS
  5. CETIRIZINE [Concomitant]
     Active Substance: CETIRIZINE HYDROCHLORIDE
     Dosage: DAILY DOSE: 5 MG
  6. CLOBAZAM [Concomitant]
     Active Substance: CLOBAZAM
     Dosage: DAILY DOSE: 20 MG
  7. VITAMINS [Concomitant]
     Active Substance: VITAMINS
     Dosage: DAILY DOSE: 0.6 ML
  8. VALPROATE SODIUM [Concomitant]
     Active Substance: VALPROATE SODIUM
     Dosage: DAILY DOSE: 880 MG
  9. ALBUTEROL [Concomitant]
     Active Substance: ALBUTEROL
     Dosage: 1-2 PUFFS PRN 100MICROGRAMS/DOSE INHALER
  10. SODIUM PICOSULFATE [Concomitant]
     Active Substance: SODIUM PICOSULFATE
     Dosage: DAILY DOSE: 2 MG

REACTIONS (2)
  - Rash [Unknown]
  - Catheter site erythema [Unknown]
